FAERS Safety Report 7786621-7 (Version None)
Quarter: 2011Q3

REPORT INFORMATION
  Report Type: 
  Country: None (occurrence: None)
  Receive Date: 20110929
  Receipt Date: 20110919
  Transmission Date: 20111222
  Serious: Yes (Hospitalization, Other)
  Sender: FDA-Public Use
  Company Number: GB-ELI_LILLY_AND_COMPANY-GB201003005540

PATIENT
  Sex: Female
  Weight: 71.5 kg

DRUGS (13)
  1. ZYPREXA [Suspect]
     Dosage: 10 MG, UNK
  2. ZYPREXA [Suspect]
     Dosage: 10 MG, DAILY (1/D)
  3. ZYPREXA [Suspect]
     Dosage: 15 MG, UNK
     Route: 048
  4. CARBAMAZEPINE [Concomitant]
     Dosage: 600 MG, UNK
  5. ZYPREXA [Suspect]
     Indication: BIPOLAR I DISORDER
     Dosage: UNK, UNK
     Dates: start: 20080906
  6. ZYPREXA [Suspect]
     Dosage: 15 MG, QD
     Dates: start: 20110101, end: 20110101
  7. ZYPREXA [Suspect]
     Indication: BIPOLAR DISORDER
     Dosage: 5 MG, UNK
  8. ZYPREXA [Suspect]
     Dosage: 15 MG, DAILY (1/D)
  9. CARBAMAZEPINE [Concomitant]
     Dosage: 800 MG, UNK
     Dates: start: 20080906
  10. SPIRIVA [Concomitant]
     Indication: CHRONIC OBSTRUCTIVE PULMONARY DISEASE
     Dosage: UNK, UNKNOWN
     Route: 065
     Dates: start: 20100407
  11. TEMAZEPAM [Concomitant]
     Dosage: UNK, UNKNOWN
     Route: 065
  12. ZYPREXA [Suspect]
     Dosage: 10 MG, QD
  13. HALOPERIDOL [Concomitant]
     Indication: AFFECTIVE DISORDER
     Dosage: 10 MG, QD
     Route: 048
     Dates: start: 20000605

REACTIONS (29)
  - SYNCOPE [None]
  - APATHY [None]
  - LOSS OF CONSCIOUSNESS [None]
  - RENAL IMPAIRMENT [None]
  - ASTHENIA [None]
  - HYPERHIDROSIS [None]
  - GENERAL PHYSICAL CONDITION ABNORMAL [None]
  - CHRONIC OBSTRUCTIVE PULMONARY DISEASE [None]
  - HYPOPNOEA [None]
  - LETHARGY [None]
  - MUSCLE SPASMS [None]
  - DIZZINESS [None]
  - VARICOSE VEIN [None]
  - FAECAL VOLUME INCREASED [None]
  - MENTAL DISORDER [None]
  - HYPERSENSITIVITY [None]
  - WEIGHT DECREASED [None]
  - POLLAKIURIA [None]
  - PRURITUS [None]
  - SYSTEMIC LUPUS ERYTHEMATOSUS [None]
  - URINARY RETENTION [None]
  - RESPIRATORY RATE INCREASED [None]
  - URINARY INCONTINENCE [None]
  - OEDEMA PERIPHERAL [None]
  - DEPRESSED MOOD [None]
  - FEAR [None]
  - ADVERSE DRUG REACTION [None]
  - WEIGHT INCREASED [None]
  - FEELING ABNORMAL [None]
